FAERS Safety Report 13616510 (Version 1)
Quarter: 2017Q2

REPORT INFORMATION
  Report Type: Spontaneous
  Country: US (occurrence: US)
  Receive Date: 20170606
  Receipt Date: 20170606
  Transmission Date: 20170830
  Serious: Yes (Death)
  Sender: FDA-Public Use
  Company Number: None

PATIENT
  Age: 46 Year
  Sex: Male

DRUGS (11)
  1. CIMZIA [Suspect]
     Active Substance: CERTOLIZUMAB PEGOL
     Indication: CROHN^S DISEASE
     Dosage: ?          OTHER FREQUENCY:INJECT EVERY WEEK;?
     Route: 058
  2. LISINOPRIL. [Concomitant]
     Active Substance: LISINOPRIL
  3. TORADOL [Concomitant]
     Active Substance: KETOROLAC TROMETHAMINE
  4. MORPHINE [Concomitant]
     Active Substance: MORPHINE
  5. ALLOPURINOL. [Concomitant]
     Active Substance: ALLOPURINOL
  6. GLYCOPYRROLATE. [Concomitant]
     Active Substance: GLYCOPYRROLATE
  7. FOLIC ACID. [Concomitant]
     Active Substance: FOLIC ACID
  8. LEXAPRO [Concomitant]
     Active Substance: ESCITALOPRAM OXALATE
  9. ONDANSETRIN [Concomitant]
  10. UROCIT-K [Concomitant]
     Active Substance: POTASSIUM CITRATE
  11. METOCLOPRAMIDE. [Concomitant]
     Active Substance: METOCLOPRAMIDE

REACTIONS (1)
  - Death [None]

NARRATIVE: CASE EVENT DATE: 20170525
